FAERS Safety Report 9402926 (Version 1)
Quarter: 2013Q3

REPORT INFORMATION
  Report Type: Spontaneous
  Country: IT (occurrence: IT)
  Receive Date: 20130716
  Receipt Date: 20130716
  Transmission Date: 20140515
  Serious: Yes (Hospitalization)
  Sender: FDA-Public Use
  Company Number: IT-TEVA-418634ISR

PATIENT
  Age: 61 Year
  Sex: Female

DRUGS (6)
  1. TORASEMIDE [Suspect]
     Indication: HYPERTENSION
     Dosage: 10 MILLIGRAM DAILY;
     Route: 048
     Dates: start: 20100101, end: 20130518
  2. KANRENOL [Suspect]
     Indication: HYPERTENSION
     Route: 048
     Dates: start: 20100101, end: 20130518
  3. KARVEA [Suspect]
     Indication: HYPERTENSION
     Route: 048
     Dates: start: 20100101, end: 20130518
  4. EUTIROX [Concomitant]
  5. ESOMEPRAZOLO MAGNESIO TRIIDRATO [Concomitant]
  6. CLOROCHINA DIFOSFATO [Concomitant]
     Indication: RAYNAUD^S PHENOMENON

REACTIONS (2)
  - Renal failure acute [Recovered/Resolved]
  - Hyperkalaemia [Recovered/Resolved]
